FAERS Safety Report 15173031 (Version 3)
Quarter: 2018Q3

REPORT INFORMATION
  Report Type: Spontaneous
  Country: JP (occurrence: JP)
  Receive Date: 20180720
  Receipt Date: 20180814
  Transmission Date: 20181010
  Serious: Yes (Hospitalization)
  Sender: FDA-Public Use
  Company Number: JP-ELI_LILLY_AND_COMPANY-JP201806004780

PATIENT
  Age: 80 Year
  Sex: Female

DRUGS (11)
  1. SHINLUCK [Suspect]
     Active Substance: SODIUM PICOSULFATE
     Indication: CONSTIPATION
     Dosage: 7.5 MG, DAILY
     Route: 048
  2. TAKEPRON [Suspect]
     Active Substance: LANSOPRAZOLE
     Indication: GASTRIC ULCER
     Dosage: 30 MG, DAILY
     Route: 048
  3. FERROMIA [Suspect]
     Active Substance: SODIUM FERROUS CITRATE
     Indication: ANAEMIA
     Dosage: 150 MG, DAILY
     Route: 048
  4. DULOXETINE HYDROCHLORIDE. [Suspect]
     Active Substance: DULOXETINE HYDROCHLORIDE
     Dosage: 40 MG, DAILY
     Route: 048
     Dates: start: 201805
  5. SENNOSIDE                          /00571901/ [Suspect]
     Active Substance: SENNOSIDES A AND B
     Indication: DYSCHEZIA
  6. DULOXETINE HYDROCHLORIDE. [Suspect]
     Active Substance: DULOXETINE HYDROCHLORIDE
     Indication: BACK PAIN
     Dosage: 20 MG, DAILY
     Route: 048
     Dates: start: 201611, end: 201805
  7. YOKUKANSAN [Suspect]
     Active Substance: HERBALS
     Indication: PRODUCT USED FOR UNKNOWN INDICATION
     Dosage: 15 G, DAILY
     Route: 048
  8. RIZE                               /00624801/ [Suspect]
     Active Substance: CLOTIAZEPAM
     Indication: PRODUCT USED FOR UNKNOWN INDICATION
     Dosage: 30 MG, DAILY
     Route: 048
  9. GRAMALIL [Suspect]
     Active Substance: TIAPRIDE HYDROCHLORIDE
     Indication: PRODUCT USED FOR UNKNOWN INDICATION
     Dosage: 25 MG, DAILY
     Route: 048
  10. SENNOSIDE                          /00571901/ [Suspect]
     Active Substance: SENNOSIDES A AND B
     Indication: CONSTIPATION
     Dosage: 24 MG, DAILY
     Route: 048
  11. SENNA [Suspect]
     Active Substance: SENNA LEAF\SENNOSIDES\SENNOSIDES A AND B
     Indication: PRODUCT USED FOR UNKNOWN INDICATION
     Dosage: 1 G, DAILY
     Route: 048

REACTIONS (5)
  - Pleural effusion [Recovered/Resolved]
  - Weight increased [Recovered/Resolved]
  - Ileus [Unknown]
  - Off label use [Unknown]
  - Oedema [Recovered/Resolved]

NARRATIVE: CASE EVENT DATE: 20180618
